FAERS Safety Report 8563811-7 (Version None)
Quarter: 2012Q3

REPORT INFORMATION
  Report Type: 
  Country: None (occurrence: None)
  Receive Date: 20120803
  Receipt Date: 20120730
  Transmission Date: 20120928
  Serious: Yes (Other)
  Sender: FDA-Public Use
  Company Number: AT-AMGEN-AUTSP2012047570

PATIENT
  Sex: Male

DRUGS (4)
  1. LEUPROLIDE ACETATE [Concomitant]
     Indication: PROSTATE CANCER
     Dosage: 130 MG, Q3MO
  2. DOCETAXEL [Concomitant]
     Indication: PROSTATE CANCER
     Dosage: 75 MG, Q3WK
  3. XGEVA [Suspect]
     Indication: METASTASES TO BONE
  4. XGEVA [Suspect]
     Indication: PROSTATE CANCER
     Dosage: 120 MG, Q4WK
     Dates: start: 20120301

REACTIONS (3)
  - PAIN [None]
  - OSTEONECROSIS OF JAW [None]
  - IMPAIRED HEALING [None]
